FAERS Safety Report 9808950 (Version 1)
Quarter: 2014Q1

REPORT INFORMATION
  Report Type: Spontaneous
  Country: FR (occurrence: FR)
  Receive Date: 20140110
  Receipt Date: 20140110
  Transmission Date: 20141002
  Serious: Yes (Hospitalization)
  Sender: FDA-Public Use
  Company Number: FR-PFIZER INC-2014003187

PATIENT
  Age: 55 Year
  Sex: Male
  Weight: 87 kg

DRUGS (9)
  1. TAHOR [Suspect]
     Dosage: 40 MG, 1X/DAY
     Route: 048
     Dates: start: 201307, end: 20131129
  2. NEORAL [Suspect]
     Dosage: 25 MG, 2X/DAY
     Route: 048
     Dates: start: 201307, end: 20131201
  3. CELLCEPT [Suspect]
     Dosage: 1 G, 2X/DAY
     Route: 048
     Dates: start: 201307
  4. CORTANCYL [Concomitant]
     Dosage: 5 MG, DAILY
  5. LASILIX [Concomitant]
     Dosage: 80 MG, UNK
     Dates: start: 201304
  6. LASILIX [Concomitant]
     Dosage: 250 MG, UNK
     Dates: start: 201311
  7. LASILIX [Concomitant]
     Dosage: 325 MG, UNK
     Dates: start: 201312
  8. VALACICLOVIR [Concomitant]
     Dosage: 500 MG, 2X/DAY
  9. BACTRIM [Concomitant]
     Dosage: 0.25 DF, DAILY

REACTIONS (3)
  - Generalised oedema [Recovering/Resolving]
  - Ascites [Recovering/Resolving]
  - Oedema peripheral [Recovering/Resolving]
